FAERS Safety Report 17633260 (Version 1)
Quarter: 2020Q2

REPORT INFORMATION
  Report Type: Report from Study
  Country: None (occurrence: BR)
  Receive Date: 20200407
  Receipt Date: 20200407
  Transmission Date: 20200713
  Serious: Yes (Other)
  Sender: FDA-Public Use
  Company Number: BR-ABBVIE-20P-020-3352980-00

PATIENT
  Sex: Male
  Weight: 35 kg

DRUGS (9)
  1. DEPAKOTE [Suspect]
     Active Substance: DIVALPROEX SODIUM
     Dosage: DAILY750MG, 2 IN THE MORNING;4 AT NIGHT; WEANED OFF STARTING NOV-2019 UNTIL END DATE
     Route: 048
     Dates: start: 202001, end: 202001
  2. RISPERIDONE. [Concomitant]
     Active Substance: RISPERIDONE
     Indication: AGGRESSION
     Dosage: DAILY DOSE 3 MILLIGRAM, MORNING/NIGHT;
     Route: 048
  3. DEPAKOTE [Suspect]
     Active Substance: DIVALPROEX SODIUM
     Indication: MYOCLONUS
     Dosage: DAILY 250 MG, 2 CAPSULE, STARTED BY THE END OF 2017/BEGINNING OF  2018; DOSE INCREASED
     Route: 048
     Dates: end: 202001
  4. DEPAKOTE ER [Suspect]
     Active Substance: DIVALPROEX SODIUM
     Dosage: THERAPY RESUMED AFTER DEPAKOTE SPRINKLE DISCONTINUATION, 04-APR-2020 DOSE WILL INCREASE
     Route: 065
     Dates: start: 20200330
  5. DEPAKOTE [Suspect]
     Active Substance: DIVALPROEX SODIUM
     Dosage: DAILY  DOSE 500 MG, 2 CAPSULE IN THE MORNING/AT NIGHT
     Route: 048
     Dates: start: 202001, end: 202001
  6. RIVOTRIL [Suspect]
     Active Substance: CLONAZEPAM
     Indication: PSYCHOMOTOR HYPERACTIVITY
     Dosage: DAILY DOSE 5 DROPS, AT NIGHT; DISCONTINUED BECAUSE PATIENT WOULD GET TOO AGITATED
     Route: 065
     Dates: start: 20200228, end: 20200331
  7. ATENSINA [Concomitant]
     Active Substance: CLONIDINE
     Indication: STEREOTYPY
     Dosage: ^1/4^ IN THE MORNING; ^1/4^ AFTER LUNCH; ^HALF^ AT NIGHT,
     Route: 048
     Dates: start: 2018
  8. RIVOTRIL [Suspect]
     Active Substance: CLONAZEPAM
     Indication: SLEEP DISORDER
  9. DEPAKOTE ER [Suspect]
     Active Substance: DIVALPROEX SODIUM
     Indication: PRODUCT USED FOR UNKNOWN INDICATION
     Dosage: PHYSICIAN REQUESTED THAT NOT TAKE DEPAKOTE ER FOR 4 DAYS AFTER THERAPY SWITCHED SPRINKLE
     Route: 065

REACTIONS (18)
  - Seizure [Recovering/Resolving]
  - Insomnia [Unknown]
  - Extra dose administered [Unknown]
  - Diarrhoea [Recovered/Resolved]
  - Vomiting [Recovered/Resolved]
  - Sedation [Recovered/Resolved]
  - Product use issue [Unknown]
  - Product use complaint [Recovered/Resolved]
  - Myoclonus [Recovering/Resolving]
  - Hyperchlorhydria [Recovered/Resolved]
  - Nausea [Recovered/Resolved]
  - Salivary hypersecretion [Recovered/Resolved]
  - Wrong technique in product usage process [Unknown]
  - Malabsorption [Recovering/Resolving]
  - Decreased appetite [Recovered/Resolved]
  - Screaming [Recovering/Resolving]
  - Agitation [Unknown]
  - Malaise [Recovering/Resolving]
